FAERS Safety Report 25025441 (Version 2)
Quarter: 2025Q1

REPORT INFORMATION
  Report Type: Report from Study
  Country: CA (occurrence: CA)
  Receive Date: 20250228
  Receipt Date: 20250303
  Transmission Date: 20250408
  Serious: Yes (Other)
  Sender: TEVA
  Company Number: CA-TEVA-VS-3299486

PATIENT
  Age: 42 Year
  Sex: Female

DRUGS (2)
  1. AJOVY [Suspect]
     Active Substance: FREMANEZUMAB-VFRM
     Indication: Migraine prophylaxis
     Dosage: LAST DOSE ADMINISTERED DATE: 2025-02-11
     Route: 058
     Dates: start: 20241211, end: 20250211
  2. IRBESARTAN [Concomitant]
     Active Substance: IRBESARTAN
     Indication: Product used for unknown indication

REACTIONS (7)
  - Syncope [Unknown]
  - Injection site rash [Unknown]
  - Injection site pruritus [Unknown]
  - Injection site erythema [Unknown]
  - Injection site pain [Unknown]
  - Injection site swelling [Unknown]
  - Injection site warmth [Unknown]

NARRATIVE: CASE EVENT DATE: 20240211
